FAERS Safety Report 20089365 (Version 1)
Quarter: 2021Q4

REPORT INFORMATION
  Report Type: Spontaneous
  Country: US (occurrence: US)
  Receive Date: 20211119
  Receipt Date: 20211119
  Transmission Date: 20220303
  Serious: Yes (Death, Life-Threatening, Hospitalization, Other)
  Sender: FDA-Public Use
  Company Number: US-MLMSERVICE-20211104-3203034-1

PATIENT
  Age: 42 Year
  Sex: Female

DRUGS (4)
  1. TACROLIMUS [Suspect]
     Active Substance: TACROLIMUS
     Indication: Immunosuppression
     Dosage: UNK DOSE WAS REDUCED
     Route: 065
  2. TACROLIMUS [Suspect]
     Active Substance: TACROLIMUS
     Dosage: DOSE WAS REDUCED
     Route: 065
  3. MYCOPHENOLATE MOFETIL [Suspect]
     Active Substance: MYCOPHENOLATE MOFETIL
     Indication: Immunosuppression
     Dosage: UNK
     Route: 065
  4. PREDNISONE [Suspect]
     Active Substance: PREDNISONE
     Indication: Immunosuppression
     Dosage: UNK
     Route: 065

REACTIONS (8)
  - Brain herniation [Fatal]
  - Brain death [Fatal]
  - Status epilepticus [Unknown]
  - Haemodynamic instability [Unknown]
  - Brain oedema [Fatal]
  - Cardiac arrest [Recovered/Resolved]
  - Progressive multifocal leukoencephalopathy [Fatal]
  - JC virus infection [Fatal]
